FAERS Safety Report 15164478 (Version 1)
Quarter: 2018Q3

REPORT INFORMATION
  Report Type: Report from Study
  Country: US (occurrence: US)
  Receive Date: 20180719
  Receipt Date: 20180719
  Transmission Date: 20181010
  Serious: Yes (Hospitalization, Other)
  Sender: FDA-Public Use
  Company Number: US-AMGEN-USASP2018096590

PATIENT
  Age: 74 Year
  Sex: Female

DRUGS (3)
  1. ENBREL [Suspect]
     Active Substance: ETANERCEPT
     Dosage: 50 MG, QWK ON FRIDAYS
     Route: 065
     Dates: start: 2018
  2. FORTEO [Concomitant]
     Active Substance: TERIPARATIDE
     Dosage: UNK UNK, QD
     Route: 065
  3. ENBREL [Suspect]
     Active Substance: ETANERCEPT
     Indication: RHEUMATOID ARTHRITIS
     Dosage: 50 MG, QWK ON FRIDAYS
     Route: 065
     Dates: end: 2018

REACTIONS (5)
  - Injection site pain [Unknown]
  - Urinary tract infection [Unknown]
  - Therapeutic procedure [Unknown]
  - General physical health deterioration [Unknown]
  - Cholecystectomy [Unknown]

NARRATIVE: CASE EVENT DATE: 2018
